FAERS Safety Report 9093452 (Version 1)
Quarter: 2013Q1

REPORT INFORMATION
  Report Type: Spontaneous
  Country: US (occurrence: None)
  Receive Date: 20130213
  Receipt Date: 20130213
  Transmission Date: 20140127
  Serious: Yes (Hospitalization)
  Sender: FDA-Public Use
  Company Number: None

PATIENT
  Age: 69 Year
  Sex: Male

DRUGS (1)
  1. HYDRALAZINE [Suspect]
     Indication: HYPERTENSION
     Dates: start: 20120731, end: 20120731

REACTIONS (1)
  - Hypotension [None]
